FAERS Safety Report 9397073 (Version 1)
Quarter: 2013Q3

REPORT INFORMATION
  Report Type: Spontaneous
  Country: US (occurrence: US)
  Receive Date: 20130712
  Receipt Date: 20130712
  Transmission Date: 20140515
  Serious: No
  Sender: FDA-Public Use
  Company Number: US-PFIZER INC-2013204026

PATIENT
  Age: 84 Year
  Sex: Female
  Weight: 72.56 kg

DRUGS (2)
  1. ADVIL [Suspect]
     Indication: ARTHRALGIA
     Dosage: 200 MG, AS NEEDED
  2. ADVIL PM [Suspect]
     Indication: ARTHRALGIA
     Dosage: 400 MG, DAILY

REACTIONS (2)
  - Intentional drug misuse [Unknown]
  - Diarrhoea [Unknown]
